FAERS Safety Report 16556716 (Version 2)
Quarter: 2019Q3

REPORT INFORMATION
  Report Type: Spontaneous
  Country: US (occurrence: US)
  Receive Date: 20190711
  Receipt Date: 20190726
  Transmission Date: 20191004
  Serious: No
  Sender: FDA-Public Use
  Company Number: US-UNITED THERAPEUTICS-UNT-2019-011563

PATIENT
  Sex: Male

DRUGS (1)
  1. REMODULIN [Suspect]
     Active Substance: TREPROSTINIL
     Indication: PULMONARY ARTERIAL HYPERTENSION
     Dosage: 0.01 ?G/KG, CONTINUING
     Route: 058
     Dates: start: 20190417

REACTIONS (10)
  - Infusion site inflammation [Unknown]
  - Infusion site vesicles [Unknown]
  - Flank pain [Unknown]
  - Tremor [Unknown]
  - Infusion site erythema [Unknown]
  - Headache [Unknown]
  - Infusion site pain [Not Recovered/Not Resolved]
  - Infusion site swelling [Unknown]
  - Dermatitis contact [Unknown]
  - Pain [Unknown]

NARRATIVE: CASE EVENT DATE: 2019
